FAERS Safety Report 13626754 (Version 1)
Quarter: 2017Q2

REPORT INFORMATION
  Report Type: Spontaneous
  Country: US (occurrence: US)
  Receive Date: 20170607
  Receipt Date: 20170607
  Transmission Date: 20170830
  Serious: No
  Sender: FDA-Public Use
  Company Number: US-JNJFOC-20161006022

PATIENT
  Age: 10 Year
  Sex: Male

DRUGS (2)
  1. RISPERDAL M-TAB [Suspect]
     Active Substance: RISPERIDONE
     Indication: PSYCHOTIC DISORDER
     Route: 048
  2. RISPERDAL [Suspect]
     Active Substance: RISPERIDONE
     Indication: PSYCHOTIC DISORDER
     Route: 048
     Dates: start: 20090618, end: 20091210

REACTIONS (4)
  - Gynaecomastia [Unknown]
  - Obesity [Unknown]
  - Nausea [Unknown]
  - Emotional distress [Unknown]

NARRATIVE: CASE EVENT DATE: 200908
